FAERS Safety Report 11044033 (Version 2)
Quarter: 2015Q2

REPORT INFORMATION
  Report Type: Report from Study
  Country: FR (occurrence: FR)
  Receive Date: 20150417
  Receipt Date: 20150505
  Transmission Date: 20150821
  Serious: Yes (Death, Life-Threatening, Hospitalization)
  Sender: FDA-Public Use
  Company Number: FR-BRISTOL-MYERS SQUIBB COMPANY-BMS-2015-022851

PATIENT
  Age: 75 Year
  Sex: Male

DRUGS (5)
  1. FLUOROURACIL. [Suspect]
     Active Substance: FLUOROURACIL
     Indication: SQUAMOUS CELL CARCINOMA OF HEAD AND NECK
     Dosage: 6800 MG, UNK Q21D
     Route: 042
     Dates: start: 20141126, end: 20150205
  2. ENDOXAN                            /00021101/ [Suspect]
     Active Substance: CYCLOPHOSPHAMIDE
     Indication: SQUAMOUS CELL CARCINOMA OF HEAD AND NECK
     Dosage: 50 MG, UNK
     Route: 048
     Dates: start: 20150227, end: 20150323
  3. CARBOPLATIN. [Suspect]
     Active Substance: CARBOPLATIN
     Indication: SQUAMOUS CELL CARCINOMA OF HEAD AND NECK
     Dosage: 360 MG, UNK Q21D
     Route: 042
     Dates: start: 20141126, end: 20150205
  4. CETUXIMAB [Suspect]
     Active Substance: CETUXIMAB
     Indication: SQUAMOUS CELL CARCINOMA OF HEAD AND NECK
     Dosage: 420 MG/M2, QD
     Route: 042
     Dates: start: 20141126, end: 20150220
  5. TAXOL [Suspect]
     Active Substance: PACLITAXEL
     Indication: SQUAMOUS CELL CARCINOMA OF HEAD AND NECK
     Dosage: 130 MG, UNK
     Route: 042
     Dates: start: 20150227, end: 20150313

REACTIONS (4)
  - Oxygen saturation decreased [Fatal]
  - Septic shock [Fatal]
  - Interstitial lung disease [Fatal]
  - Malaise [Fatal]

NARRATIVE: CASE EVENT DATE: 20150323
